FAERS Safety Report 9788516 (Version 1)
Quarter: 2013Q4

REPORT INFORMATION
  Report Type: Report from Study
  Country: IN (occurrence: IN)
  Receive Date: 20131230
  Receipt Date: 20131230
  Transmission Date: 20140711
  Serious: Yes (Death, Hospitalization)
  Sender: FDA-Public Use
  Company Number: PHHY2013IN152334

PATIENT
  Age: 96 Year
  Sex: Male
  Weight: 56 kg

DRUGS (4)
  1. EXELON PATCH [Suspect]
     Indication: DEMENTIA ALZHEIMER^S TYPE
     Dosage: 4.6 MG, DAILY
     Route: 062
     Dates: start: 20110303
  2. ELKAR [Concomitant]
     Indication: ANTIVIRAL TREATMENT
     Dosage: UNK UKN, DAILY
     Route: 048
  3. QUETIAPIN [Concomitant]
     Indication: SCHIZOPHRENIA
     Dosage: UNK UKN, DAILY
     Route: 048
  4. SYNDOPA [Concomitant]
     Indication: PARKINSON^S DISEASE
     Dosage: UNK UKN, DAILY
     Route: 048

REACTIONS (1)
  - Renal failure [Fatal]
